FAERS Safety Report 24668641 (Version 1)
Quarter: 2024Q4

REPORT INFORMATION
  Report Type: Spontaneous
  Country: US (occurrence: US)
  Receive Date: 20241127
  Receipt Date: 20241127
  Transmission Date: 20250115
  Serious: Yes (Other)
  Sender: STRIDES
  Company Number: US-STRIDES ARCOLAB LIMITED-2024SP001708

PATIENT
  Age: 34 Year
  Sex: Male

DRUGS (1)
  1. PROPAFENONE [Suspect]
     Active Substance: PROPAFENONE
     Indication: Atrial tachycardia
     Dosage: 450 MILLIGRAM
     Route: 048

REACTIONS (2)
  - Ventricular arrhythmia [Recovered/Resolved]
  - Off label use [Unknown]
